FAERS Safety Report 8191925-2 (Version None)
Quarter: 2012Q1

REPORT INFORMATION
  Report Type: 
  Country: None (occurrence: None)
  Receive Date: 20120307
  Receipt Date: 20120229
  Transmission Date: 20120608
  Serious: Yes (Other)
  Sender: FDA-Public Use
  Company Number: PHHY2011JP111390

PATIENT
  Age: 73 Year
  Sex: Male

DRUGS (1)
  1. ZOMETA [Suspect]
     Indication: METASTASES TO BONE
     Dosage: UNK UKN, UNK
     Route: 041
     Dates: start: 20081001, end: 20100301

REACTIONS (8)
  - TOOTH ABSCESS [None]
  - OSTEONECROSIS OF JAW [None]
  - ERYTHEMA [None]
  - GINGIVAL INFECTION [None]
  - BONE PAIN [None]
  - SWELLING [None]
  - BONE LESION [None]
  - PERIODONTAL DISEASE [None]
